FAERS Safety Report 5716926-2 (Version None)
Quarter: 2008Q2

REPORT INFORMATION
  Report Type: 
  Country: None (occurrence: None)
  Receive Date: 20080424
  Receipt Date: 20080411
  Transmission Date: 20081010
  Serious: Yes (Other)
  Sender: FDA-Public Use
  Company Number: US-AMGEN-QUU269040

PATIENT
  Sex: Female

DRUGS (6)
  1. NEULASTA [Suspect]
     Indication: CHEMOTHERAPY
     Route: 065
     Dates: start: 20061208, end: 20070301
  2. OXALIPLATIN [Concomitant]
     Dates: start: 20061201, end: 20070301
  3. FLUOROURACIL [Concomitant]
     Dates: start: 20061201
  4. HYDROCODONE BITARTRATE [Concomitant]
  5. LEUCOVORIN CALCIUM [Concomitant]
     Dates: start: 20061201
  6. IRINOTECAN HCL [Concomitant]
     Dates: start: 20061201

REACTIONS (5)
  - BACK PAIN [None]
  - CARCINOID TUMOUR OF THE SMALL BOWEL [None]
  - HEPATIC CANCER METASTATIC [None]
  - MALIGNANT NEOPLASM PROGRESSION [None]
  - SPLENOMEGALY [None]
